FAERS Safety Report 7599679-5 (Version None)
Quarter: 2011Q3

REPORT INFORMATION
  Report Type: 
  Country: None (occurrence: None)
  Receive Date: 20110711
  Receipt Date: 20110628
  Transmission Date: 20111222
  Serious: Yes (Hospitalization)
  Sender: FDA-Public Use
  Company Number: JP-ELI_LILLY_AND_COMPANY-JP201106008411

PATIENT
  Age: 65 Year
  Sex: Male

DRUGS (7)
  1. MUCOSOLVAN [Concomitant]
     Dosage: UNK
     Route: 048
     Dates: end: 20110615
  2. CONIEL [Concomitant]
     Dosage: UNK
     Route: 048
     Dates: end: 20110615
  3. ALESION [Concomitant]
     Dosage: UNK
     Route: 048
     Dates: end: 20110615
  4. DEPAS [Concomitant]
     Dosage: UNK
     Route: 048
     Dates: end: 20110615
  5. SENNOSIDE [Concomitant]
     Dosage: UNK
     Route: 048
     Dates: end: 20110615
  6. CEREKINON [Concomitant]
     Dosage: UNK
     Route: 048
     Dates: end: 20110615
  7. ZYPREXA [Suspect]
     Indication: SCHIZOPHRENIA
     Dosage: 15 MG, QD
     Route: 048

REACTIONS (1)
  - HYPONATRAEMIA [None]
